FAERS Safety Report 16783486 (Version 2)
Quarter: 2021Q2

REPORT INFORMATION
  Report Type: Spontaneous
  Country: CA (occurrence: CA)
  Receive Date: 20190907
  Receipt Date: 20210512
  Transmission Date: 20210716
  Serious: Yes (Disabling, Other)
  Sender: FDA-Public Use
  Company Number: CA-ACCORD-154107

PATIENT
  Age: 67 Year
  Sex: Female

DRUGS (1)
  1. ANASTROZOLE. [Suspect]
     Active Substance: ANASTROZOLE
     Indication: BREAST CANCER
     Dosage: 1 EVERY 1 DAY(S)
     Route: 048

REACTIONS (3)
  - Arthralgia [Unknown]
  - Burning sensation [Unknown]
  - Mobility decreased [Unknown]
